FAERS Safety Report 8437337-5 (Version None)
Quarter: 2012Q2

REPORT INFORMATION
  Report Type: 
  Country: None (occurrence: None)
  Receive Date: 20120614
  Receipt Date: 20120309
  Transmission Date: 20120825
  Serious: No
  Sender: FDA-Public Use
  Company Number: US-AMGEN-USASP2012011694

PATIENT
  Age: 73 Year
  Sex: Female

DRUGS (4)
  1. FISH OIL [Concomitant]
  2. PROLIA [Suspect]
     Indication: OSTEOPOROSIS POSTMENOPAUSAL
     Dosage: 60 MG, Q6MO
     Dates: start: 20110901
  3. PANTOPRAZOLE [Concomitant]
     Indication: REFLUX GASTRITIS
     Dosage: UNK UNK, QD
  4. VITAMIN TAB [Concomitant]

REACTIONS (2)
  - CYSTITIS [None]
  - GASTROOESOPHAGEAL REFLUX DISEASE [None]
